FAERS Safety Report 8087323-2 (Version None)
Quarter: 2012Q1

REPORT INFORMATION
  Report Type: 
  Country: None (occurrence: None)
  Receive Date: 20120128
  Receipt Date: 20110427
  Transmission Date: 20120608
  Serious: No
  Sender: FDA-Public Use
  Company Number: US-ABBOTT-11P-163-0722148-00

PATIENT
  Sex: Male
  Weight: 71.732 kg

DRUGS (6)
  1. LIPITOR [Concomitant]
     Indication: BLOOD CHOLESTEROL INCREASED
  2. METOPROLOL TARTRATE [Concomitant]
     Indication: HYPERTENSION
  3. HUMIRA [Suspect]
     Indication: CROHN'S DISEASE
     Dates: start: 20100901
  4. PLAVIX [Concomitant]
     Indication: ARTERIAL OCCLUSIVE DISEASE
  5. UNKNOWN BLOOD THINNER [Concomitant]
     Indication: ISCHAEMIC HEART DISEASE PROPHYLAXIS
     Dates: start: 20090101
  6. UNKNOWN MEDICATION [Concomitant]
     Indication: CROHN'S DISEASE

REACTIONS (5)
  - WEIGHT BEARING DIFFICULTY [None]
  - GAIT DISTURBANCE [None]
  - ARTHRALGIA [None]
  - ARTHRITIS [None]
  - ARTHROPATHY [None]
